FAERS Safety Report 10431657 (Version 3)
Quarter: 2014Q4

REPORT INFORMATION
  Report Type: Report from Study
  Country: AU (occurrence: AU)
  Receive Date: 20140904
  Receipt Date: 20141125
  Transmission Date: 20150528
  Serious: Yes (Other)
  Sender: FDA-Public Use
  Company Number: AU-ONYX-2014-1874

PATIENT
  Age: 78 Year
  Sex: Female

DRUGS (17)
  1. SALBUTAMOL [Concomitant]
     Active Substance: ALBUTEROL
     Indication: UPPER RESPIRATORY TRACT INFECTION
     Route: 055
     Dates: start: 20140616
  2. DEXAMETHASONE. [Suspect]
     Active Substance: DEXAMETHASONE
     Indication: PLASMA CELL MYELOMA
     Route: 048
     Dates: start: 20140203, end: 20140407
  3. METFORMIN [Concomitant]
     Active Substance: METFORMIN HYDROCHLORIDE
     Indication: DIABETES MELLITUS
     Route: 048
     Dates: start: 1998
  4. LANTUS [Concomitant]
     Active Substance: INSULIN GLARGINE
     Indication: DIABETES MELLITUS
     Route: 058
     Dates: start: 20140311
  5. IRBESARTIN [Concomitant]
     Indication: HYPERTENSION
     Route: 048
  6. DIAMACRON [Concomitant]
     Indication: DIABETES MELLITUS
     Route: 045
     Dates: start: 2011
  7. PANAMAX [Concomitant]
     Active Substance: ACETAMINOPHEN
     Indication: BONE PAIN
     Route: 048
     Dates: start: 20120301
  8. CARFILZOMIB [Suspect]
     Active Substance: CARFILZOMIB
     Indication: PLASMA CELL MYELOMA
     Route: 042
     Dates: start: 20140203, end: 20140204
  9. ALLOPURINOL. [Concomitant]
     Active Substance: ALLOPURINOL
     Indication: PROPHYLAXIS
     Route: 048
     Dates: start: 20140627
  10. COLOXY WITH SENNA [Concomitant]
     Indication: CONSTIPATION
     Route: 048
     Dates: start: 201403
  11. AUGMENTIN DUO FORTE [Concomitant]
     Active Substance: AMOXICILLIN\CLAVULANATE POTASSIUM
     Indication: UPPER RESPIRATORY TRACT INFECTION
     Route: 048
     Dates: start: 20140616
  12. SERATIDE [Concomitant]
     Indication: UPPER RESPIRATORY TRACT INFECTION
     Route: 055
     Dates: start: 20140616
  13. CARFILZOMIB [Suspect]
     Active Substance: CARFILZOMIB
     Route: 042
     Dates: start: 20140303
  14. DEXAMETHASONE. [Suspect]
     Active Substance: DEXAMETHASONE
     Route: 048
     Dates: start: 20140408
  15. CARFILZOMIB [Suspect]
     Active Substance: CARFILZOMIB
     Route: 042
     Dates: start: 20140210, end: 20140218
  16. AGELOC R2 DAY [Concomitant]
     Indication: PROPHYLAXIS
     Route: 048
     Dates: start: 20140611
  17. PRUNELAX [Concomitant]
     Indication: CONSTIPATION
     Route: 048
     Dates: start: 201403

REACTIONS (2)
  - Naevus haemorrhage [None]
  - Basal cell carcinoma [Recovered/Resolved]

NARRATIVE: CASE EVENT DATE: 20140825
